FAERS Safety Report 9876776 (Version 2)
Quarter: 2014Q1

REPORT INFORMATION
  Report Type: Other
  Country: US (occurrence: US)
  Receive Date: 20140206
  Receipt Date: 20140206
  Transmission Date: 20141002
  Serious: No
  Sender: FDA-Public Use
  Company Number: US-ACORDA-ACO_36454_2013

PATIENT
  Age: 57 Year
  Sex: Female
  Weight: 74.83 kg

DRUGS (16)
  1. AMPYRA [Suspect]
     Indication: GAIT DISTURBANCE
     Dosage: 10 MG, BID
     Route: 048
     Dates: start: 201211, end: 20130710
  2. TECFIDERA [Suspect]
     Indication: MULTIPLE SCLEROSIS
     Dosage: 120-240 MG, UNK
     Route: 048
     Dates: start: 20130501
  3. TECFIDERA [Suspect]
     Dosage: 240 MG, UNK
  4. GABAPENTIN [Concomitant]
     Indication: PRODUCT USED FOR UNKNOWN INDICATION
     Dosage: 400 MG, UNK
     Route: 065
  5. DIAZEPAM [Concomitant]
     Indication: PRODUCT USED FOR UNKNOWN INDICATION
     Dosage: UNK,UNK
     Route: 065
  6. TOPROL [Concomitant]
     Indication: PRODUCT USED FOR UNKNOWN INDICATION
     Dosage: 25MG,UNK
     Route: 065
  7. COZAAR [Concomitant]
     Indication: PRODUCT USED FOR UNKNOWN INDICATION
     Dosage: 25 MG,UNK
     Route: 065
  8. NEURONTIN [Concomitant]
     Indication: PRODUCT USED FOR UNKNOWN INDICATION
  9. MULTIVITAMIN [Concomitant]
     Indication: PRODUCT USED FOR UNKNOWN INDICATION
  10. VITAMIN B COMPLEX [Concomitant]
     Indication: PRODUCT USED FOR UNKNOWN INDICATION
  11. ALL OTHER THERAPEUTIC PRODUCTS [Concomitant]
     Indication: PRODUCT USED FOR UNKNOWN INDICATION
  12. VESICARE [Concomitant]
     Indication: PRODUCT USED FOR UNKNOWN INDICATION
  13. STOOL SOFTENER [Concomitant]
     Indication: CONSTIPATION
  14. IBUPROFEN [Concomitant]
     Indication: PRODUCT USED FOR UNKNOWN INDICATION
     Dosage: UNK
  15. LIDODERM [Concomitant]
     Indication: PRODUCT USED FOR UNKNOWN INDICATION
     Dosage: UNK
  16. METOPROLOL [Concomitant]
     Indication: PRODUCT USED FOR UNKNOWN INDICATION
     Dosage: UNK

REACTIONS (8)
  - Hand fracture [Recovered/Resolved]
  - Fall [Recovered/Resolved]
  - Dermatitis acneiform [Recovered/Resolved]
  - Hordeolum [Recovered/Resolved]
  - Contusion [Recovered/Resolved]
  - Musculoskeletal chest pain [Recovered/Resolved]
  - Gait disturbance [Not Recovered/Not Resolved]
  - Treatment failure [Unknown]
